FAERS Safety Report 6853448-X (Version None)
Quarter: 2010Q3

REPORT INFORMATION
  Report Type: 
  Country: None (occurrence: None)
  Receive Date: 20100717
  Receipt Date: 20071207
  Transmission Date: 20110219
  Serious: No
  Sender: FDA-Public Use
  Company Number: US-PFIZER INC-2007103928

PATIENT
  Sex: Female

DRUGS (3)
  1. CHANTIX [Suspect]
     Indication: SMOKING CESSATION THERAPY
     Dates: start: 20070101, end: 20071206
  2. TRIAMTERENE AND HYDROCHLOROTHIAZIDE [Concomitant]
  3. PREMARIN [Concomitant]

REACTIONS (2)
  - BURNING SENSATION [None]
  - LIP SWELLING [None]
